FAERS Safety Report 5257523-5 (Version None)
Quarter: 2007Q1

REPORT INFORMATION
  Report Type: 
  Country: None (occurrence: None)
  Receive Date: 20070307
  Receipt Date: 20061109
  Transmission Date: 20070707
  Serious: No
  Sender: FDA-Public Use
  Company Number: US-GLAXOSMITHKLINE-A0619063A

PATIENT
  Age: 59 Year
  Sex: Female

DRUGS (6)
  1. REQUIP [Suspect]
     Indication: RESTLESS LEGS SYNDROME
     Dosage: 1.25MG PER DAY
     Route: 048
     Dates: start: 20060602
  2. ADDERALL XR 10 [Concomitant]
  3. CELEXA [Concomitant]
  4. TRAZODONE HCL [Concomitant]
  5. VERAPAMIL [Concomitant]
  6. NAPROXEN [Concomitant]

REACTIONS (2)
  - DRUG INEFFECTIVE [None]
  - RETINAL TEAR [None]
